FAERS Safety Report 8986343 (Version 1)
Quarter: 2012Q4

REPORT INFORMATION
  Report Type: 
  Country: AR (occurrence: AR)
  Receive Date: 20121226
  Receipt Date: 20121226
  Transmission Date: 20130627
  Serious: Yes (Other)
  Sender: FDA-Public Use
  Company Number: PHHY2012AR109294

PATIENT
  Age: 69 Year
  Sex: Female

DRUGS (1)
  1. ONBREZ [Suspect]
     Indication: DYSPNOEA
     Dosage: 150 mg, QD
     Route: 048
     Dates: start: 201209

REACTIONS (5)
  - Lung disorder [Unknown]
  - Gait disturbance [Unknown]
  - Dyspnoea [Unknown]
  - Incorrect route of drug administration [Unknown]
  - Therapeutic response decreased [Not Recovered/Not Resolved]
